FAERS Safety Report 4633049-4 (Version None)
Quarter: 2005Q2

REPORT INFORMATION
  Report Type: 
  Country: None (occurrence: None)
  Receive Date: 20050411
  Receipt Date: 20050411
  Transmission Date: 20051028
  Serious: Yes (Death)
  Sender: FDA-Public Use
  Company Number: None

PATIENT
  Age: 70 Year
  Sex: Female
  Weight: 77.1115 kg

DRUGS (4)
  1. DOXIL [Suspect]
     Indication: OVARIAN CANCER
     Dosage: 56MG   ONE TIME  INTRAVENOU
     Route: 042
     Dates: start: 20040419, end: 20040419
  2. SYNTHROID [Concomitant]
  3. AMIODARONE HCL [Concomitant]
  4. METOPROLOL TARTRATE [Concomitant]

REACTIONS (1)
  - DEATH [None]
